FAERS Safety Report 8904678 (Version 5)
Quarter: 2014Q4

REPORT INFORMATION
  Report Type: Spontaneous
  Country: US (occurrence: US)
  Receive Date: 20121112
  Receipt Date: 20141229
  Transmission Date: 20150529
  Serious: Yes (Hospitalization, Disabling, Other)
  Sender: FDA-Public Use
  Company Number: US-009507513-1211USA002759

PATIENT
  Sex: Female
  Weight: 74.83 kg

DRUGS (3)
  1. ONE-A-DAY WOMEN^S [Concomitant]
     Active Substance: VITAMINS
     Dosage: UNK
     Dates: start: 1990
  2. FOSAMAX [Suspect]
     Active Substance: ALENDRONATE SODIUM
     Indication: OSTEOPOROSIS
     Dosage: 70 MG, QW
     Route: 048
     Dates: end: 20110623
  3. CALCIUM (UNSPECIFIED) [Concomitant]
     Active Substance: CALCIUM
     Dosage: 1500 MG, QD
     Dates: start: 1990

REACTIONS (28)
  - Hypoacusis [Unknown]
  - Arthritis [Unknown]
  - Cataract [Unknown]
  - Coronary artery disease [Unknown]
  - Nerve compression [Recovering/Resolving]
  - Osteoporosis [Unknown]
  - Vitamin D deficiency [Unknown]
  - Hysterectomy [Unknown]
  - Radius fracture [Unknown]
  - Skin cancer [Unknown]
  - Hypercholesterolaemia [Unknown]
  - Actinic elastosis [Unknown]
  - Closed fracture manipulation [Unknown]
  - Constipation [Unknown]
  - Stress fracture [Unknown]
  - Low turnover osteopathy [Unknown]
  - Femur fracture [Unknown]
  - Hypertension [Unknown]
  - Pollakiuria [Unknown]
  - Open reduction of fracture [Unknown]
  - Skin lesion [Unknown]
  - Oedema [Unknown]
  - Carotid bruit [Unknown]
  - Fibrocystic breast disease [Unknown]
  - Tonsillectomy [Unknown]
  - Femur fracture [Not Recovered/Not Resolved]
  - Bladder repair [Unknown]
  - Skin neoplasm excision [Unknown]

NARRATIVE: CASE EVENT DATE: 20000101
